FAERS Safety Report 13082293 (Version 1)
Quarter: 2017Q1

REPORT INFORMATION
  Report Type: Report from Study
  Country: US (occurrence: US)
  Receive Date: 20170103
  Receipt Date: 20170103
  Transmission Date: 20170428
  Serious: Yes (Death)
  Sender: FDA-Public Use
  Company Number: US-PFIZER INC-2016605206

PATIENT

DRUGS (3)
  1. GEMCITABINE HYDROCHLORIDE. [Suspect]
     Active Substance: GEMCITABINE HYDROCHLORIDE
     Indication: PANCREATIC CARCINOMA METASTATIC
     Dosage: 1000 MG/M2, CYCLIC (OVER 100 MINUTES, CYCLE CONSISTS OF 28 DAYS)
     Route: 042
  2. BEVACIZUMAB [Suspect]
     Active Substance: BEVACIZUMAB
     Indication: PANCREATIC CARCINOMA METASTATIC
     Dosage: 10 MG/KG, CYCLIC  (GIVEN ON DAY 1 AND 15, CYCLE CONSISTS OF 28 DAYS)
     Route: 042
  3. OXALIPLATIN. [Suspect]
     Active Substance: OXALIPLATIN
     Indication: PANCREATIC CARCINOMA METASTATIC
     Dosage: 100 MG/M2, CYCLIC (GIVEN ON DAY 2 AND 16, CYCLE CONSISTS OF 28 DAYS)
     Route: 042

REACTIONS (1)
  - Cerebral ischaemia [Fatal]
